FAERS Safety Report 5425734-1 (Version None)
Quarter: 2007Q3

REPORT INFORMATION
  Report Type: 
  Country: None (occurrence: None)
  Receive Date: 20070824
  Receipt Date: 20070814
  Transmission Date: 20080115
  Serious: Yes (Other)
  Sender: FDA-Public Use
  Company Number: SE-PFIZER INC-2007069173

PATIENT
  Age: 58 Year
  Sex: Male

DRUGS (5)
  1. VIAGRA [Suspect]
     Indication: ERECTILE DYSFUNCTION
  2. CAVERJECT [Suspect]
     Indication: ERECTILE DYSFUNCTION
     Dates: start: 20070101
  3. BONDIL [Suspect]
     Indication: ERECTILE DYSFUNCTION
  4. GLYCERYL TRINITRATE [Concomitant]
  5. CLONAZEPAM [Concomitant]

REACTIONS (7)
  - ANGINA PECTORIS [None]
  - CYST [None]
  - EJACULATION FAILURE [None]
  - GALLBLADDER OPERATION [None]
  - NEOPLASM [None]
  - PENILE PAIN [None]
  - PROSTATIC OPERATION [None]
